FAERS Safety Report 11336636 (Version 2)
Quarter: 2015Q3

REPORT INFORMATION
  Report Type: Spontaneous
  Country: JP (occurrence: JP)
  Receive Date: 20150804
  Receipt Date: 20150817
  Transmission Date: 20151125
  Serious: Yes (Hospitalization, Other)
  Sender: FDA-Public Use
  Company Number: JP-SHIRE-JP201508767AA

PATIENT
  Age: 37 Year
  Sex: Female

DRUGS (5)
  1. AGRYLIN [Suspect]
     Active Substance: ANAGRELIDE HYDROCHLORIDE
     Dosage: 1 MG, UNKNOWN
     Route: 048
     Dates: start: 20150120, end: 20150312
  2. BAYASPIRIN [Suspect]
     Active Substance: ASPIRIN
     Dosage: UNK, UNKNOWN
     Route: 048
  3. AGRYLIN [Suspect]
     Active Substance: ANAGRELIDE HYDROCHLORIDE
     Dosage: 1.5MG , UNKNOWN
     Route: 048
     Dates: start: 20150313
  4. BAYASPIRIN [Suspect]
     Active Substance: ASPIRIN
     Indication: ESSENTIAL THROMBOCYTHAEMIA
     Dosage: MORE THAN 30 DF IN CONJUNCTION WITH AGRYLIN
     Route: 048
     Dates: start: 20150718
  5. AGRYLIN [Suspect]
     Active Substance: ANAGRELIDE HYDROCHLORIDE
     Indication: ESSENTIAL THROMBOCYTHAEMIA
     Dosage: MORE THAN 30 DF IN CONJUNCTION WITH BYASPIRIN
     Route: 048
     Dates: start: 20150718, end: 20150718

REACTIONS (2)
  - Suicide attempt [Unknown]
  - Intentional overdose [Unknown]

NARRATIVE: CASE EVENT DATE: 20150718
